FAERS Safety Report 6453054-5 (Version None)
Quarter: 2009Q4

REPORT INFORMATION
  Report Type: 
  Country: None (occurrence: None)
  Receive Date: 20091124
  Receipt Date: 20090303
  Transmission Date: 20100525
  Serious: No
  Sender: FDA-Public Use
  Company Number: US-ABBOTT-09P-163-0560796-00

PATIENT
  Sex: Female
  Weight: 108.96 kg

DRUGS (10)
  1. TRICOR [Suspect]
     Indication: BLOOD CHOLESTEROL INCREASED
     Route: 048
     Dates: start: 20081201, end: 20090224
  2. TRICOR [Suspect]
     Indication: LOW DENSITY LIPOPROTEIN INCREASED
  3. COUMADIN [Concomitant]
     Indication: THROMBOSIS
  4. CELEXA [Concomitant]
     Indication: ANXIETY
     Route: 048
  5. BUSPAR [Concomitant]
     Indication: ANXIETY
     Route: 048
  6. NEXIUM [Concomitant]
     Indication: HIATUS HERNIA
  7. CALCIUM [Concomitant]
     Indication: OSTEOPOROSIS PROPHYLAXIS
     Route: 048
  8. VITAMINS [Concomitant]
     Indication: ROUTINE HEALTH MAINTENANCE
  9. GLUCOSAMINE [Concomitant]
     Indication: DRUG USE FOR UNKNOWN INDICATION
  10. SYNTHROID [Concomitant]
     Indication: HYPOTHYROIDISM

REACTIONS (8)
  - BLOOD GLUCOSE INCREASED [None]
  - CHILLS [None]
  - FATIGUE [None]
  - MOVEMENT DISORDER [None]
  - MUSCULAR WEAKNESS [None]
  - MYALGIA [None]
  - PYREXIA [None]
  - TENDERNESS [None]
